FAERS Safety Report 19174044 (Version 2)
Quarter: 2021Q2

REPORT INFORMATION
  Report Type: Spontaneous
  Country: US (occurrence: US)
  Receive Date: 20210423
  Receipt Date: 20210429
  Transmission Date: 20210717
  Serious: No
  Sender: FDA-Public Use
  Company Number: US-PFIZER INC-2021353685

PATIENT
  Age: 52 Year
  Sex: Female
  Weight: 68.93 kg

DRUGS (7)
  1. ALEVE [Concomitant]
     Active Substance: NAPROXEN SODIUM
     Dosage: UNK
  2. IBRANCE [Suspect]
     Active Substance: PALBOCICLIB
     Dosage: 125 MG, CYCLIC (DAILY 3 WEEKS ON, THEN 1 WEEK OFF)
     Route: 048
     Dates: end: 2021
  3. VITAMIN D3 [Concomitant]
     Active Substance: CHOLECALCIFEROL
     Dosage: UNK
  4. ZOMETA [Concomitant]
     Active Substance: ZOLEDRONIC ACID
     Dosage: UNK
  5. CALCIUM CARBONATE. [Concomitant]
     Active Substance: CALCIUM CARBONATE
     Dosage: UNK
  6. PRILOSEC [Concomitant]
     Active Substance: OMEPRAZOLE MAGNESIUM
     Dosage: UNK
  7. IBRANCE [Suspect]
     Active Substance: PALBOCICLIB
     Indication: BREAST CANCER FEMALE
     Dosage: 125 MG, CYCLIC (DAILY 3 WEEKS ON, THEN 1 WEEK OFF)
     Route: 048
     Dates: start: 20210302

REACTIONS (2)
  - Nausea [Unknown]
  - White blood cell count decreased [Unknown]

NARRATIVE: CASE EVENT DATE: 2021
